FAERS Safety Report 8533995-5 (Version None)
Quarter: 2012Q2

REPORT INFORMATION
  Report Type: 
  Country: None (occurrence: None)
  Receive Date: 20120412
  Receipt Date: 20090218
  Transmission Date: 20120825
  Serious: Yes (Other)
  Sender: FDA-Public Use
  Company Number: PHEH2009US01833

PATIENT
  Age: 28 Year
  Sex: Male

DRUGS (2)
  1. CLOZARIL [Suspect]
     Indication: SCHIZOPHRENIA
     Dosage: 200 MG AM/225 MG PRN, ORAL
     Route: 048
     Dates: start: 20081201, end: 20090215
  2. SEROQUEL [Concomitant]

REACTIONS (5)
  - DIZZINESS [None]
  - GLOSSITIS [None]
  - HYPOTENSION [None]
  - RASH [None]
  - ORAL MUCOSAL EXFOLIATION [None]
